FAERS Safety Report 12036227 (Version 1)
Quarter: 2016Q1

REPORT INFORMATION
  Report Type: Report from Study
  Country: MX (occurrence: MX)
  Receive Date: 20160207
  Receipt Date: 20160207
  Transmission Date: 20160526
  Serious: Yes (Hospitalization)
  Sender: FDA-Public Use
  Company Number: MX-ROCHE-1706735

PATIENT
  Age: 59 Year
  Sex: Female

DRUGS (1)
  1. HERCEPTIN [Suspect]
     Active Substance: TRASTUZUMAB
     Indication: BREAST CANCER
     Dosage: FOR 3 MONTHS
     Route: 042
     Dates: start: 20151124, end: 201601

REACTIONS (1)
  - Mastectomy [Recovering/Resolving]

NARRATIVE: CASE EVENT DATE: 20160126
